FAERS Safety Report 25401846 (Version 2)
Quarter: 2025Q3

REPORT INFORMATION
  Report Type: Spontaneous
  Country: US (occurrence: US)
  Receive Date: 20250605
  Receipt Date: 20250716
  Transmission Date: 20251021
  Serious: No
  Sender: PFIZER
  Company Number: US-PFIZER INC-PV202400094251

PATIENT
  Age: 70 Year
  Sex: Male
  Weight: 130 kg

DRUGS (22)
  1. BOSULIF [Suspect]
     Active Substance: BOSUTINIB MONOHYDRATE
     Indication: Chronic myeloid leukaemia
     Dosage: 400 MG, DAILY (TAKE 4 TABLETS DAILY)
     Route: 048
     Dates: start: 20230512
  2. OMEPRAZOLE [Concomitant]
     Active Substance: OMEPRAZOLE
  3. ALBUTEROL SULFATE [Concomitant]
     Active Substance: ALBUTEROL SULFATE
     Indication: Wheezing
     Route: 055
  4. ALBUTEROL SULFATE [Concomitant]
     Active Substance: ALBUTEROL SULFATE
     Indication: Dyspnoea
  5. PACERONE [Concomitant]
     Active Substance: AMIODARONE HYDROCHLORIDE
     Dosage: TAKE 1 TABLET (200 MG TOTAL) BY MOUTH IN THE MORNING
     Route: 048
  6. NORVASC [Concomitant]
     Active Substance: AMLODIPINE BESYLATE
     Dosage: TAKE 1 TABLET (10 MG TOTAL) BY MOUTH IN THE MORNING
     Route: 048
  7. ELIQUIS [Concomitant]
     Active Substance: APIXABAN
     Indication: Anticoagulant therapy
     Dosage: TAKE 5 MG BY MOUTH IN THE MORNING AND 5 MG IN THE EVENING
     Route: 048
  8. ELIQUIS [Concomitant]
     Active Substance: APIXABAN
     Indication: Atrial fibrillation
  9. ELIQUIS [Concomitant]
     Active Substance: APIXABAN
     Indication: Cerebrovascular accident
  10. LIPITOR [Concomitant]
     Active Substance: ATORVASTATIN CALCIUM
     Dosage: TAKE 80 MG BY MOUTH IN THE MORNING
     Route: 048
  11. CHOLECALCIFEROL [Concomitant]
     Active Substance: CHOLECALCIFEROL
     Dosage: TAKE 1 TABLET (5,000 UNITS TOTAL) BY MOUTH IN THE MORNING
     Route: 048
  12. CATAPRES-TTS [Concomitant]
     Active Substance: CLONIDINE
     Dosage: 0.1 MG/24 HR, PLACE 1 PATCH ON THE SKIN ONCE A WEEK
  13. CYANOCOBALAMIN [Concomitant]
     Active Substance: CYANOCOBALAMIN
     Dosage: PLACE 1,000 MCG UNDER THE TONGUE IN THE MORNING
     Route: 060
  14. JARDIANCE [Concomitant]
     Active Substance: EMPAGLIFLOZIN
     Route: 048
  15. PEPCID [Concomitant]
     Active Substance: FAMOTIDINE
     Dosage: TAKE 20 MG BY MOUTH IN THE MORNING
     Route: 048
  16. FERROUS SULFATE [Concomitant]
     Active Substance: FERROUS SULFATE
     Dosage: TAKE 324 MG BY MOUTH DAILY WITH BREAKFAST
     Route: 048
  17. HYDREA [Concomitant]
     Active Substance: HYDROXYUREA
     Dosage: TAKE 1 CAPSULE (500 MG TOTAL) BY MOUTH EVERY OTHER DAY TAKE AT THE SAME TIME EACH DAY
     Route: 048
  18. XALATAN [Concomitant]
     Active Substance: LATANOPROST
     Dosage: 0.005 % OPHTHALMIC SOLUTION, ADMINISTER 1 DROP INTO BOTH EYES NIGHTLY
     Route: 047
  19. GLUCOPHAGE XR [Concomitant]
     Active Substance: METFORMIN HYDROCHLORIDE
     Dosage: TAKE 2 TABLETS (1,500 MG TOTAL) BY MOUTH DAILY WITH BREAKFAST
     Route: 048
  20. PROTONIX [Concomitant]
     Active Substance: PANTOPRAZOLE SODIUM
     Dosage: TAKE 1 TABLET (40 MG TOTAL) BY MOUTH IN THE MORNING
     Route: 048
  21. CIALIS [Concomitant]
     Active Substance: TADALAFIL
     Dosage: TAKE 1 TABLET (5 MG TOTAL) BY MOUTH NIGHTLY
     Route: 048
  22. DIOVAN [Concomitant]
     Active Substance: VALSARTAN
     Dosage: TAKE 320 MG BY MOUTH IN THE MORNING
     Route: 048

REACTIONS (7)
  - Cancer pain [Recovering/Resolving]
  - Nausea [Unknown]
  - Vomiting [Unknown]
  - Diarrhoea [Unknown]
  - Fatigue [Unknown]
  - Iron deficiency [Unknown]
  - Intentional product misuse [Unknown]
